FAERS Safety Report 13927279 (Version 1)
Quarter: 2017Q3

REPORT INFORMATION
  Report Type: Spontaneous
  Country: US (occurrence: US)
  Receive Date: 20170901
  Receipt Date: 20170901
  Transmission Date: 20171127
  Serious: Yes (Hospitalization, Other)
  Sender: FDA-Public Use
  Company Number: US-AMGEN-USASP2017129849

PATIENT
  Age: 78 Year
  Sex: Male

DRUGS (3)
  1. ENBREL [Suspect]
     Active Substance: ETANERCEPT
     Dosage: 25 MG, 2 TIMES/WK
     Route: 065
  2. ENBREL [Suspect]
     Active Substance: ETANERCEPT
     Indication: RHEUMATOID ARTHRITIS
     Dosage: 25 MG, 2 TIMES/WK
     Route: 065
     Dates: start: 2000
  3. ENBREL [Suspect]
     Active Substance: ETANERCEPT
     Dosage: 25 MG, QWK
     Route: 065
     Dates: start: 201509

REACTIONS (10)
  - Unevaluable event [Unknown]
  - Off label use [Unknown]
  - Lung infection [Recovered/Resolved]
  - Nasopharyngitis [Unknown]
  - Sensitivity to weather change [Unknown]
  - Hypertonic bladder [Unknown]
  - Dry eye [Unknown]
  - Food allergy [Unknown]
  - Cataract operation [Unknown]
  - Malaise [Not Recovered/Not Resolved]

NARRATIVE: CASE EVENT DATE: 201509
